FAERS Safety Report 9513587 (Version 1)
Quarter: 2013Q3

REPORT INFORMATION
  Report Type: Spontaneous
  Country: US (occurrence: US)
  Receive Date: 20130910
  Receipt Date: 20130910
  Transmission Date: 20140515
  Serious: Yes (Hospitalization)
  Sender: FDA-Public Use
  Company Number: US-GLAXOSMITHKLINE-A1040449A

PATIENT
  Age: 79 Year
  Sex: Female

DRUGS (4)
  1. ADVAIR [Suspect]
     Indication: ASTHMA
     Dosage: 1BLS TWICE PER DAY
     Route: 055
     Dates: start: 2010
  2. HYDROCHLOROTHIAZIDE [Concomitant]
  3. ATENOLOL [Concomitant]
  4. LOSARTAN [Concomitant]

REACTIONS (3)
  - Oropharyngeal candidiasis [Unknown]
  - Pulmonary mass [Unknown]
  - Surgery [Unknown]
